FAERS Safety Report 12447380 (Version 2)
Quarter: 2016Q2

REPORT INFORMATION
  Report Type: Spontaneous
  Country: DE (occurrence: DE)
  Receive Date: 20160608
  Receipt Date: 20160614
  Transmission Date: 20160815
  Serious: Yes (Other)
  Sender: FDA-Public Use
  Company Number: DE-PFIZER INC-2016279086

PATIENT
  Age: 78 Year
  Sex: Male
  Weight: 97 kg

DRUGS (8)
  1. IBUPROFEN. [Suspect]
     Active Substance: IBUPROFEN
     Indication: TOOTHACHE
     Dosage: 400 MG, UNK
     Dates: start: 20160308, end: 20160316
  2. MARCUMAR [Interacting]
     Active Substance: PHENPROCOUMON
     Indication: ATRIAL FIBRILLATION
     Dosage: LONG TIME THERAPY
     Route: 048
  3. BISOPROLOL DURA [Concomitant]
     Active Substance: BISOPROLOL
     Dosage: 5 MG, DAILY
  4. FLUVASTATIN STADA [Concomitant]
     Dosage: 80 MG, DAILY
  5. PREDNI H [Concomitant]
     Active Substance: PREDNISOLONE
     Dosage: 5 MG, DAILY
  6. DIOVAN [Concomitant]
     Active Substance: VALSARTAN
     Dosage: 160 MG, DAILY
  7. VELMETIA [Concomitant]
     Active Substance: METFORMIN\SITAGLIPTIN
     Indication: DIABETES MELLITUS
     Dosage: 2 DF (50/850 MG), DAILY
  8. ESIDRIX [Concomitant]
     Active Substance: HYDROCHLOROTHIAZIDE
     Dosage: 12.5 MG, DAILY

REACTIONS (3)
  - Labelled drug-drug interaction medication error [Recovered/Resolved]
  - International normalised ratio increased [Recovered/Resolved]
  - Drug interaction [Recovered/Resolved]

NARRATIVE: CASE EVENT DATE: 20160311
